FAERS Safety Report 13897388 (Version 1)
Quarter: 2017Q3

REPORT INFORMATION
  Report Type: Spontaneous
  Country: US (occurrence: US)
  Receive Date: 20170823
  Receipt Date: 20170823
  Transmission Date: 20171127
  Serious: No
  Sender: FDA-Public Use
  Company Number: GXBR2017US001813

PATIENT
  Sex: Female
  Weight: 56.24 kg

DRUGS (1)
  1. LORAZEPAM ACTAVIS 2MG [Suspect]
     Active Substance: LORAZEPAM
     Indication: ANXIETY
     Dosage: 1 MG, UNK
     Route: 065

REACTIONS (2)
  - Product taste abnormal [Unknown]
  - Drug ineffective [Unknown]
